FAERS Safety Report 10025864 (Version 1)
Quarter: 2014Q1

REPORT INFORMATION
  Report Type: Spontaneous
  Country: CL (occurrence: CL)
  Receive Date: 20140320
  Receipt Date: 20140320
  Transmission Date: 20141002
  Serious: Yes (Other)
  Sender: FDA-Public Use
  Company Number: CL-PFIZER INC-2014077494

PATIENT
  Age: 64 Year
  Sex: Female

DRUGS (8)
  1. XALATAN [Suspect]
     Indication: ANGLE CLOSURE GLAUCOMA
     Dosage: 1 GTT, 1X/DAY
     Route: 047
     Dates: start: 2011
  2. ATENOLOL [Concomitant]
  3. LOSARTAN [Concomitant]
  4. ASPIRINA [Concomitant]
  5. HYDROCHLOROTHIAZIDE [Concomitant]
  6. ESPIRONOLACTONA [Concomitant]
  7. LOVASTATIN [Concomitant]
  8. METFORMIN [Concomitant]

REACTIONS (1)
  - Iridotomy [Not Recovered/Not Resolved]
